FAERS Safety Report 4888528-1 (Version None)
Quarter: 2005Q4

REPORT INFORMATION
  Report Type: 
  Country: None (occurrence: None)
  Receive Date: 20051215
  Receipt Date: 20041229
  Transmission Date: 20060501
  Serious: Yes (Hospitalization, Other)
  Sender: FDA-Public Use
  Company Number: 2004122077

PATIENT
  Age: 59 Year
  Sex: Female
  Weight: 58.9676 kg

DRUGS (7)
  1. BEXTRA [Suspect]
     Indication: OSTEOARTHRITIS
     Dosage: 20 MG (20 MG,QD INTERVAL: EVERY DAY),ORAL
     Route: 048
     Dates: start: 20030101, end: 20041101
  2. VENLAFAXINE HCL [Concomitant]
  3. TRAZODONE (TRAZODONE) [Concomitant]
  4. METAXALONE [Concomitant]
  5. LISINOPRIL [Concomitant]
  6. PRAMIPEXOLE (PRAMIPEXOLE) [Concomitant]
  7. ESTRADIOL [Concomitant]

REACTIONS (8)
  - DEHYDRATION [None]
  - DIARRHOEA [None]
  - DYSPNOEA [None]
  - FAECES DISCOLOURED [None]
  - HEART RATE INCREASED [None]
  - SYNCOPE [None]
  - ULCER HAEMORRHAGE [None]
  - VOMITING [None]
